FAERS Safety Report 8972364 (Version 2)
Quarter: 2012Q4

REPORT INFORMATION
  Report Type: Report from Study
  Country: NL (occurrence: NL)
  Receive Date: 20121218
  Receipt Date: 20121231
  Transmission Date: 20130627
  Serious: Yes (Life-Threatening, Hospitalization)
  Sender: FDA-Public Use
  Company Number: NL-ROCHE-1168564

PATIENT
  Age: 66 Year
  Sex: Female
  Weight: 75 kg

DRUGS (9)
  1. RITUXIMAB [Suspect]
     Indication: MALIGNANT LYMPHOID NEOPLASM
     Dosage: last dose prior to SAE on 05/Dec/2012
     Route: 042
     Dates: start: 20121112
  2. MTX [Suspect]
     Indication: MALIGNANT LYMPHOID NEOPLASM
     Dosage: last dose prior to SAE on 06/Dec/2012
     Route: 042
     Dates: start: 20121113
  3. TENIPOSIDE [Suspect]
     Indication: MALIGNANT LYMPHOID NEOPLASM
     Dosage: last dose prior to SAE on 15/Nov/2012
     Route: 042
     Dates: start: 20121114
  4. CARMUSTINE [Suspect]
     Indication: MALIGNANT LYMPHOID NEOPLASM
     Dosage: last dose prior to SAE on 16/Nov/2012
     Route: 042
     Dates: start: 20121116
  5. PREDNISOLONE [Suspect]
     Indication: MALIGNANT LYMPHOID NEOPLASM
     Dosage: last dose prior to SAE on 17/Nov/2012
     Route: 048
     Dates: start: 20121113
  6. METFORMIN [Concomitant]
     Indication: DIABETES MELLITUS
     Dosage: 2x1000 mg. Date of last dose prior to SAe was on 09/Dec/2012
     Route: 048
     Dates: start: 2003
  7. SIMVASTATINE [Concomitant]
     Dosage: date of last dose prior to SAE was on 09/Dec/2012
     Route: 048
  8. PENTAZOLE [Concomitant]
     Dosage: last dose prior to SAE was on 09/Dec/2012
     Route: 048
     Dates: start: 20120926
  9. DEXAMETHASONE [Concomitant]
     Dosage: last dose prior to SAE was on 09/Dec/2012
     Route: 048
     Dates: start: 20120921

REACTIONS (1)
  - Respiratory failure [Recovered/Resolved]
